FAERS Safety Report 9641899 (Version 1)
Quarter: 2013Q4

REPORT INFORMATION
  Report Type: Spontaneous
  Country: JP (occurrence: JP)
  Receive Date: 20131023
  Receipt Date: 20131023
  Transmission Date: 20140711
  Serious: Yes (Hospitalization)
  Sender: FDA-Public Use
  Company Number: JP-EISAI INC-E2090-02916-SPO-JP

PATIENT
  Sex: 0

DRUGS (1)
  1. TRERIEF [Suspect]
     Indication: PRODUCT USED FOR UNKNOWN INDICATION
     Dosage: 25 MG/DAY
     Route: 048

REACTIONS (1)
  - Ileus [Unknown]
